FAERS Safety Report 7562713-2 (Version None)
Quarter: 2011Q2

REPORT INFORMATION
  Report Type: 
  Country: None (occurrence: None)
  Receive Date: 20110615
  Receipt Date: 20110601
  Transmission Date: 20111010
  Serious: Yes (Hospitalization)
  Sender: FDA-Public Use
  Company Number: B0724971A

PATIENT
  Age: 32 Year
  Sex: Female

DRUGS (4)
  1. TWINRIX INJECTION (TWINRIX) [Suspect]
     Indication: PROPHYLAXIS
     Dosage: SINGLE DOSE
  2. YELLOW FEVER VAC (NONGSK) INJECTION (YELLOW FEVER VAC (NONGSK)) [Suspect]
     Indication: PROPHYLAXIS
     Dosage: SINGLE DOSE
  3. ATOVAQUONE/PROGUANIL HYDROCHLORIDE [Suspect]
     Indication: PROPHYLACTIC CHEMOTHERAPY
  4. BERODUAL [Concomitant]

REACTIONS (16)
  - JAUNDICE [None]
  - BRONCHITIS [None]
  - VOMITING [None]
  - HEPATOSPLENOMEGALY [None]
  - BRAIN OEDEMA [None]
  - MALARIA [None]
  - ASTHENIA [None]
  - CHOLESTASIS [None]
  - NAUSEA [None]
  - ABDOMINAL PAIN [None]
  - FAECES DISCOLOURED [None]
  - DIZZINESS [None]
  - HEART RATE INCREASED [None]
  - SYNCOPE [None]
  - PAIN [None]
  - UNEVALUABLE EVENT [None]
